FAERS Safety Report 10455091 (Version 3)
Quarter: 2014Q4

REPORT INFORMATION
  Report Type: Spontaneous
  Country: BR (occurrence: BR)
  Receive Date: 20140916
  Receipt Date: 20141002
  Transmission Date: 20150528
  Serious: Yes (Hospitalization, Other)
  Sender: FDA-Public Use
  Company Number: BR-AMGEN-BRASP2014067062

PATIENT
  Age: 44 Year
  Sex: Female
  Weight: 62 kg

DRUGS (4)
  1. ALPRAZOLAM. [Concomitant]
     Active Substance: ALPRAZOLAM
     Dosage: UNK
  2. ENBREL [Suspect]
     Active Substance: ETANERCEPT
     Dosage: 25 MG, 2 TIMES/WK
     Route: 065
  3. LYRICA [Concomitant]
     Active Substance: PREGABALIN
     Dosage: UNK
  4. ENBREL [Suspect]
     Active Substance: ETANERCEPT
     Indication: RHEUMATOID ARTHRITIS
     Dosage: 50 MG, WEEKLY
     Route: 065
     Dates: start: 20140811

REACTIONS (13)
  - Cholelithiasis [Not Recovered/Not Resolved]
  - Injection site erythema [Unknown]
  - Nephrolithiasis [Not Recovered/Not Resolved]
  - Osteoarthritis [Unknown]
  - Abdominal pain [Not Recovered/Not Resolved]
  - Gastritis [Not Recovered/Not Resolved]
  - Oropharyngeal pain [Unknown]
  - Rheumatoid arthritis [Unknown]
  - Influenza [Unknown]
  - Injection site pain [Unknown]
  - Back pain [Unknown]
  - Dyspnoea [Unknown]
  - Hypersensitivity [Unknown]

NARRATIVE: CASE EVENT DATE: 2014
